FAERS Safety Report 15345221 (Version 3)
Quarter: 2018Q4

REPORT INFORMATION
  Report Type: Spontaneous
  Country: JP (occurrence: JP)
  Receive Date: 20180903
  Receipt Date: 20181104
  Transmission Date: 20190204
  Serious: No
  Sender: FDA-Public Use
  Company Number: PHJP2018JP015693

PATIENT
  Sex: Male

DRUGS (1)
  1. ILARIS [Suspect]
     Active Substance: CANAKINUMAB
     Indication: CRYOPYRIN ASSOCIATED PERIODIC SYNDROME
     Dosage: 300 MG, UNK
     Route: 058

REACTIONS (3)
  - Precocious puberty [Recovered/Resolved]
  - Hypergonadism [Unknown]
  - Dysphonia [Unknown]
